FAERS Safety Report 14215221 (Version 1)
Quarter: 2017Q4

REPORT INFORMATION
  Report Type: Spontaneous
  Country: US (occurrence: US)
  Receive Date: 20171122
  Receipt Date: 20171122
  Transmission Date: 20180321
  Serious: Yes (Hospitalization)
  Sender: FDA-Public Use
  Company Number: US-VERTEX PHARMACEUTICALS-2017-003783

PATIENT
  Age: 26 Year
  Sex: Female
  Weight: 66 kg

DRUGS (1)
  1. ORKAMBI [Suspect]
     Active Substance: IVACAFTOR\LUMACAFTOR
     Indication: CYSTIC FIBROSIS
     Dosage: 2 DOSAGE FORM (200-125 MG EACH), BID
     Route: 048
     Dates: start: 20150717

REACTIONS (2)
  - Exposure during pregnancy [Unknown]
  - Premature labour [Unknown]

NARRATIVE: CASE EVENT DATE: 20170117
